FAERS Safety Report 10616051 (Version 1)
Quarter: 2014Q4

REPORT INFORMATION
  Report Type: Report from Study
  Country: CA (occurrence: CA)
  Receive Date: 20141201
  Receipt Date: 20141201
  Transmission Date: 20150529
  Serious: Yes (Other)
  Sender: FDA-Public Use
  Company Number: CA-PFIZER INC-2014326329

PATIENT
  Age: 54 Year
  Sex: Male
  Weight: 85 kg

DRUGS (6)
  1. VEMURAFENIB [Interacting]
     Active Substance: VEMURAFENIB
     Dosage: 1920 MG, DAILY
     Route: 048
  2. DEXLANSOPRAZOLE [Concomitant]
     Active Substance: DEXLANSOPRAZOLE
     Dosage: 60 MG, 1X/DAY
     Route: 048
  3. OMEGA 3-6-9 [Concomitant]
  4. ADVIL [Concomitant]
     Active Substance: IBUPROFEN
  5. VEMURAFENIB [Interacting]
     Active Substance: VEMURAFENIB
     Dosage: 1440 MG, DAILY
     Route: 048
  6. DILANTIN [Suspect]
     Active Substance: PHENYTOIN
     Dosage: UNK

REACTIONS (6)
  - Chondroma [Unknown]
  - Rhinitis [Unknown]
  - Seizure [Unknown]
  - Squamous cell carcinoma [Unknown]
  - Radiation necrosis [Unknown]
  - Drug interaction [Unknown]
